FAERS Safety Report 4715973-7 (Version None)
Quarter: 2005Q3

REPORT INFORMATION
  Report Type: 
  Country: None (occurrence: None)
  Receive Date: 20050718
  Receipt Date: 20050316
  Transmission Date: 20060218
  Serious: Yes (Hospitalization, Disabling)
  Sender: FDA-Public Use
  Company Number: US-MERCK-0503USA03208

PATIENT
  Age: 61 Year
  Sex: Female
  Weight: 84 kg

DRUGS (24)
  1. VIOXX [Suspect]
     Indication: RHEUMATOID ARTHRITIS
     Route: 048
     Dates: start: 20020101, end: 20040101
  2. MAVIK [Concomitant]
     Indication: HYPERTENSION
     Route: 048
     Dates: start: 20000101, end: 20040101
  3. ZESTRIL [Concomitant]
     Indication: HYPERTENSION
     Route: 048
     Dates: start: 20040101
  4. LOPRESSOR [Concomitant]
     Indication: HYPERTENSION
     Route: 048
     Dates: start: 19990101
  5. PROCARDIA [Concomitant]
     Indication: HYPERTENSION
     Route: 048
     Dates: start: 20040101
  6. HYDRODIURIL [Concomitant]
     Indication: HYPERTENSION
     Route: 048
     Dates: start: 20000101, end: 20030101
  7. ASPIRIN [Concomitant]
     Indication: PROPHYLAXIS
     Route: 048
     Dates: start: 20010101, end: 20020101
  8. ASPIRIN [Concomitant]
     Route: 048
     Dates: start: 20020101
  9. PLAVIX [Concomitant]
     Indication: MYOCARDIAL INFARCTION
     Route: 048
     Dates: start: 20030101
  10. LIPITOR [Concomitant]
     Indication: BLOOD CHOLESTEROL INCREASED
     Route: 048
     Dates: start: 19990101, end: 20050101
  11. LORTAB [Concomitant]
     Indication: PAIN
     Route: 048
     Dates: start: 20010101
  12. HYDROCODONE BITARTRATE + ACETAMINOPHEN [Concomitant]
     Indication: PAIN
     Route: 048
     Dates: start: 20030101
  13. PREMARIN [Concomitant]
     Indication: HORMONE REPLACEMENT THERAPY
     Route: 065
     Dates: start: 20000101, end: 20020101
  14. ALBUTEROL [Concomitant]
     Route: 065
  15. KEFLEX [Concomitant]
     Route: 065
  16. MECLIZINE [Concomitant]
     Route: 065
  17. METFORMIN [Concomitant]
     Route: 065
  18. MYTUSSIN AC [Concomitant]
     Route: 048
  19. NEXIUM [Concomitant]
     Route: 065
  20. PROVERA [Concomitant]
     Route: 065
  21. PRILOSEC [Concomitant]
     Route: 065
  22. PREVACID [Concomitant]
     Route: 065
  23. VALIUM [Concomitant]
     Route: 065
  24. PAXIL [Concomitant]
     Route: 065

REACTIONS (19)
  - BLOOD CHOLESTEROL INCREASED [None]
  - CARDIAC MURMUR [None]
  - CARDIAC VALVE DISEASE [None]
  - CHEST PAIN [None]
  - CORONARY ARTERY DISEASE [None]
  - DIABETES MELLITUS NON-INSULIN-DEPENDENT [None]
  - DYSPNOEA [None]
  - GAIT DISTURBANCE [None]
  - GASTROOESOPHAGEAL REFLUX DISEASE [None]
  - HEADACHE [None]
  - HEART RATE IRREGULAR [None]
  - LACUNAR INFARCTION [None]
  - MALIGNANT HYPERTENSION [None]
  - NERVE COMPRESSION [None]
  - PAIN IN EXTREMITY [None]
  - PERIPHERAL VASCULAR DISORDER [None]
  - SINUS DISORDER [None]
  - SUBCLAVIAN ARTERY STENOSIS [None]
  - VERTIGO [None]
